FAERS Safety Report 21577621 (Version 2)
Quarter: 2022Q4

REPORT INFORMATION
  Report Type: Other
  Country: US (occurrence: US)
  Receive Date: 20221110
  Receipt Date: 20221220
  Transmission Date: 20230112
  Serious: Yes (Hospitalization, Other)
  Sender: FDA-Public Use
  Company Number: US-GBT-013913

PATIENT
  Sex: Female

DRUGS (1)
  1. OXBRYTA [Suspect]
     Active Substance: VOXELOTOR
     Indication: Product used for unknown indication
     Dosage: 500MG, TAKE 3 TABLETS BY MOUTH EVERY DAY
     Route: 048

REACTIONS (4)
  - Bone marrow transplant [Unknown]
  - Therapy cessation [Unknown]
  - Product dose omission issue [Unknown]
  - Hospitalisation [Unknown]
